FAERS Safety Report 16932211 (Version 2)
Quarter: 2019Q4

REPORT INFORMATION
  Report Type: Spontaneous
  Country: CO (occurrence: CO)
  Receive Date: 20191017
  Receipt Date: 20191025
  Transmission Date: 20200122
  Serious: Yes (Hospitalization, Other)
  Sender: FDA-Public Use
  Company Number: CO-BIOMARINAP-CO-2019-126300

PATIENT

DRUGS (1)
  1. ALDURAZYME [Suspect]
     Active Substance: LARONIDASE
     Indication: MUCOPOLYSACCHARIDOSIS I
     Dosage: 2 DOSAGE FORM, QW
     Route: 041
     Dates: start: 20170901, end: 20190529

REACTIONS (5)
  - Transplant [Unknown]
  - Lethargy [Unknown]
  - Pyrexia [Unknown]
  - Encephalitis [Not Recovered/Not Resolved]
  - Asthenia [Unknown]
